FAERS Safety Report 9844590 (Version 1)
Quarter: 2014Q1

REPORT INFORMATION
  Report Type: Spontaneous
  Country: GB (occurrence: None)
  Receive Date: 20140122
  Receipt Date: 20140122
  Transmission Date: 20141002
  Serious: Yes (Other)
  Sender: FDA-Public Use
  Company Number: AUR-APL-2014-00333

PATIENT
  Age: 76 Year
  Sex: Male
  Weight: 82.55 kg

DRUGS (3)
  1. CIPROFLOXACIN [Suspect]
     Indication: URINARY TRACT INFECTION
     Route: 048
     Dates: start: 20130604, end: 20130606
  2. AMLODIPINE (AMLODIPINE) [Concomitant]
  3. BENDROFLUMETHIAZIDE (BENDROPFLUMETHIAZIDE) [Concomitant]

REACTIONS (3)
  - Muscle spasms [None]
  - Neck pain [None]
  - Convulsion [None]
